FAERS Safety Report 8780407 (Version 2)
Quarter: 2013Q1

REPORT INFORMATION
  Report Type: Spontaneous
  Country: GB (occurrence: None)
  Receive Date: 20120830
  Receipt Date: 20130124
  Transmission Date: 20140127
  Serious: Yes (Hospitalization)
  Sender: FDA-Public Use
  Company Number: 2012AP002494

PATIENT
  Age: 61 Year
  Sex: Female

DRUGS (3)
  1. ALENDRONIC ACID (ALENDRONIC ACID) [Suspect]
     Indication: OSTEOPOROSIS
     Route: 048
     Dates: end: 20120714
  2. ADCAL-D3 [Concomitant]
  3. CO-CODAMOL [Concomitant]

REACTIONS (1)
  - Duodenal ulcer perforation [None]
